FAERS Safety Report 10385532 (Version 1)
Quarter: 2014Q3

REPORT INFORMATION
  Report Type: Spontaneous
  Country: IT (occurrence: IT)
  Receive Date: 20140814
  Receipt Date: 20140814
  Transmission Date: 20150326
  Serious: Yes (Other)
  Sender: FDA-Public Use
  Company Number: IT-TEVA-500530ISR

PATIENT
  Age: 46 Year
  Sex: Female
  Weight: 57 kg

DRUGS (4)
  1. CARBOPLATINO TEVA [Suspect]
     Active Substance: CARBOPLATIN
     Indication: OVARIAN CANCER METASTATIC
     Dosage: 445 MILLIGRAM DAILY;
     Route: 042
     Dates: start: 20140707, end: 20140728
  2. ONDANSETRON KABI 2 MG/ML [Concomitant]
     Indication: PREMEDICATION
     Dosage: 8 MILLIGRAM DAILY;
     Route: 042
     Dates: start: 20140707, end: 20140728
  3. GEMCITABINA TEVA 1 G [Concomitant]
     Indication: OVARIAN CANCER METASTATIC
     Dosage: 1600 MILLIGRAM DAILY;
     Route: 042
     Dates: start: 20140707, end: 20140728
  4. DECADRON 8 MG/2 ML [Concomitant]
     Indication: PREMEDICATION
     Dosage: 8 MILLIGRAM DAILY;
     Route: 042
     Dates: start: 20140707, end: 20140728

REACTIONS (3)
  - Lip oedema [Recovered/Resolved]
  - Hyperaemia [Recovered/Resolved]
  - Throat tightness [Recovered/Resolved]

NARRATIVE: CASE EVENT DATE: 20140728
